FAERS Safety Report 10082734 (Version 3)
Quarter: 2014Q3

REPORT INFORMATION
  Report Type: Spontaneous
  Country: PL (occurrence: PL)
  Receive Date: 20140416
  Receipt Date: 20140704
  Transmission Date: 20150326
  Serious: Yes (Hospitalization)
  Sender: FDA-Public Use
  Company Number: PL-AMGEN-POLSP2014027550

PATIENT
  Age: 25 Year
  Sex: Female
  Weight: 50 kg

DRUGS (5)
  1. ENCORTON                           /00044702/ [Concomitant]
     Dosage: 10 MG, UNK
     Route: 048
     Dates: start: 20110707
  2. ENBREL [Suspect]
     Active Substance: ETANERCEPT
     Indication: RHEUMATOID ARTHRITIS
     Dosage: 50 MG, WEEKLY
     Route: 058
     Dates: start: 20140312, end: 20140326
  3. METHOTREXATE (METHOTREXATE SODIUM) [Concomitant]
     Active Substance: METHOTREXATE SODIUM
     Dosage: 25 MG, UNK
     Route: 048
     Dates: start: 20121206, end: 201301
  4. FEBROFEN [Concomitant]
     Dosage: 200 UNK, AS NECESSARY
     Dates: start: 20121206
  5. HEMOFER F [Concomitant]
     Indication: ANAEMIA
     Dosage: UNK
     Dates: start: 20140306, end: 20140326

REACTIONS (3)
  - Weight decreased [Recovered/Resolved]
  - Vomiting [Recovered/Resolved]
  - Diarrhoea [Recovered/Resolved]

NARRATIVE: CASE EVENT DATE: 20140317
